FAERS Safety Report 5009603-7 (Version None)
Quarter: 2006Q2

REPORT INFORMATION
  Report Type: 
  Country: None (occurrence: None)
  Receive Date: 20060524
  Receipt Date: 20060519
  Transmission Date: 20061013
  Serious: Yes (Hospitalization)
  Sender: FDA-Public Use
  Company Number: US-JNJFOC-20060504864

PATIENT
  Sex: Male

DRUGS (14)
  1. FENTANYL TRANSDERMAL SYSTEM [Suspect]
     Route: 062
  2. FENTANYL TRANSDERMAL SYSTEM [Suspect]
     Route: 062
  3. FENTANYL TRANSDERMAL SYSTEM [Suspect]
     Route: 062
  4. METFORMIN [Concomitant]
     Route: 048
  5. NEURONTIN [Concomitant]
     Indication: PAIN
     Route: 048
  6. SPIRONOLACTONE [Concomitant]
     Route: 048
  7. LASIX [Concomitant]
     Indication: DIURETIC THERAPY
     Route: 048
  8. ISORDIL [Concomitant]
     Route: 048
  9. ASPIRIN [Concomitant]
     Indication: CEREBROVASCULAR ACCIDENT PROPHYLAXIS
     Route: 048
  10. SYNTHROID [Concomitant]
     Route: 048
  11. VITAMIN B6 [Concomitant]
     Route: 048
  12. PRAVACHOL [Concomitant]
     Route: 048
  13. XANAX [Concomitant]
     Route: 048
  14. NEXIUM [Concomitant]
     Route: 048

REACTIONS (3)
  - GALLBLADDER DISORDER [None]
  - RESPIRATORY TRACT CONGESTION [None]
  - SOMNOLENCE [None]
